FAERS Safety Report 4699114-0 (Version None)
Quarter: 2005Q2

REPORT INFORMATION
  Report Type: 
  Country: None (occurrence: None)
  Receive Date: 20050624
  Receipt Date: 20050610
  Transmission Date: 20051028
  Serious: Yes (Hospitalization)
  Sender: FDA-Public Use
  Company Number: FR-JNJFOC-20050602923

PATIENT
  Age: 83 Year
  Sex: Female
  Weight: 49 kg

DRUGS (3)
  1. IMODIUM [Suspect]
     Route: 065
  2. IMODIUM [Suspect]
     Indication: DIARRHOEA
     Route: 065
  3. TRIFLUCAN [Concomitant]
     Route: 065

REACTIONS (3)
  - CONFUSIONAL STATE [None]
  - DISORIENTATION [None]
  - SOMNOLENCE [None]
